FAERS Safety Report 20602633 (Version 2)
Quarter: 2022Q1

REPORT INFORMATION
  Report Type: Spontaneous
  Country: KW (occurrence: KW)
  Receive Date: 20220316
  Receipt Date: 20220324
  Transmission Date: 20220423
  Serious: Yes (Life-Threatening, Hospitalization, Other)
  Sender: FDA-Public Use
  Company Number: KW-MACLEODS PHARMACEUTICALS US LTD-MAC2022034801

PATIENT

DRUGS (6)
  1. CLOPIDOGREL [Suspect]
     Active Substance: CLOPIDOGREL BISULFATE
     Indication: Angina pectoris
     Dosage: UNK, STARTED ON UNKNOWN DATE IN 2021 (PLAVIX)
     Route: 065
  2. TICAGRELOR [Suspect]
     Active Substance: TICAGRELOR
     Indication: Angina pectoris
     Dosage: UNK, STARED ON UNKNOWN DATE IN 2021 AND ENDED ON UNKNOWN DATE IN 2021
     Route: 065
  3. TICAGRELOR [Suspect]
     Active Substance: TICAGRELOR
     Indication: Acute myocardial infarction
  4. ASPIRIN [Suspect]
     Active Substance: ASPIRIN
     Indication: Acute myocardial infarction
     Dosage: UNK, STARED ON UNKNOWN DATE IN 2021 AND ENDED ON UNKNOWN DATE IN 2021
     Route: 065
  5. ASPIRIN [Suspect]
     Active Substance: ASPIRIN
     Indication: Angina pectoris
  6. NITROGLYCERIN [Concomitant]
     Active Substance: NITROGLYCERIN
     Indication: Chest pain
     Dosage: UNK, STARTED IN 2021
     Route: 065

REACTIONS (5)
  - Shock [Recovered/Resolved]
  - Haematoma [Recovered/Resolved]
  - Retroperitoneal haemorrhage [Recovered/Resolved]
  - Respiratory depression [Recovered/Resolved]
  - Haemoglobin decreased [Recovered/Resolved]
